FAERS Safety Report 5227812-9 (Version None)
Quarter: 2007Q1

REPORT INFORMATION
  Report Type: 
  Country: None (occurrence: None)
  Receive Date: 20070202
  Receipt Date: 20070123
  Transmission Date: 20070707
  Serious: Yes (Other)
  Sender: FDA-Public Use
  Company Number: FR-PFIZER INC-2007006624

PATIENT
  Age: 77 Year
  Sex: Male

DRUGS (3)
  1. DALACINE [Suspect]
     Indication: INTERVERTEBRAL DISCITIS
     Route: 048
  2. CLOXACILLIN SODIUM [Concomitant]
     Route: 042
  3. OFLOXACIN [Concomitant]

REACTIONS (1)
  - OEDEMA PERIPHERAL [None]
